FAERS Safety Report 4364994-5 (Version None)
Quarter: 2004Q2

REPORT INFORMATION
  Report Type: 
  Country: None (occurrence: None)
  Receive Date: 20040521
  Receipt Date: 20040511
  Transmission Date: 20050107
  Serious: Yes (Other)
  Sender: FDA-Public Use
  Company Number: 2004032611

PATIENT
  Age: 37 Year
  Sex: Female

DRUGS (2)
  1. AMLODIPINE [Suspect]
     Indication: HYPERTENSION
     Dosage: 5 MG (1 IN 1 D), ORAL
     Route: 048
     Dates: end: 20030901
  2. LABETALOL HYDROCHLORIDE [Concomitant]

REACTIONS (8)
  - ABORTION INDUCED COMPLETE [None]
  - CYSTIC LYMPHANGIOMA [None]
  - DRUG EXPOSURE DURING PREGNANCY [None]
  - FOETAL DISORDER [None]
  - GENERALISED OEDEMA [None]
  - LYMPHANGIECTASIA [None]
  - PLACENTAL DISORDER [None]
  - PREGNANCY [None]
